FAERS Safety Report 14139647 (Version 7)
Quarter: 2017Q4

REPORT INFORMATION
  Report Type: Spontaneous
  Country: AU (occurrence: AU)
  Receive Date: 20171029
  Receipt Date: 20171228
  Transmission Date: 20180321
  Serious: Yes (Other)
  Sender: FDA-Public Use
  Company Number: PHHY2017AU157067

PATIENT
  Sex: Female
  Weight: 81 kg

DRUGS (8)
  1. TAMOXIFEN [Suspect]
     Active Substance: TAMOXIFEN
     Indication: BREAST CANCER METASTATIC
     Dosage: UNK, QD
     Route: 048
  2. ANASTROZOLE. [Suspect]
     Active Substance: ANASTROZOLE
     Indication: BREAST CANCER METASTATIC
     Dosage: UNK, QD
     Route: 048
     Dates: end: 201412
  3. CYCLOPHOSPHAMIDE. [Suspect]
     Active Substance: CYCLOPHOSPHAMIDE
     Indication: BREAST CANCER METASTATIC
     Route: 065
  4. ABRAXANE [Suspect]
     Active Substance: PACLITAXEL
     Indication: BREAST CANCER METASTATIC
     Route: 065
  5. 5-FLUOROURACIL [Suspect]
     Active Substance: FLUOROURACIL
     Indication: BREAST CANCER METASTATIC
     Route: 042
  6. EPIRUBICIN [Suspect]
     Active Substance: EPIRUBICIN
     Indication: BREAST CANCER METASTATIC
     Route: 042
  7. DOCETAXEL. [Suspect]
     Active Substance: DOCETAXEL
     Indication: BREAST CANCER METASTATIC
     Route: 065
  8. GEMCITABINE [Suspect]
     Active Substance: GEMCITABINE\GEMCITABINE HYDROCHLORIDE
     Indication: BREAST CANCER METASTATIC
     Route: 042
     Dates: start: 201511, end: 201608

REACTIONS (25)
  - Blood calcium decreased [Recovering/Resolving]
  - Blood urea decreased [Recovering/Resolving]
  - Haemoglobin decreased [Recovering/Resolving]
  - Blood creatinine decreased [Recovering/Resolving]
  - Blood lactate dehydrogenase increased [Recovering/Resolving]
  - Mean cell haemoglobin decreased [Recovering/Resolving]
  - Neutrophil count decreased [Recovering/Resolving]
  - International normalised ratio increased [Recovering/Resolving]
  - Metastases to bone [Not Recovered/Not Resolved]
  - Blood albumin decreased [Recovering/Resolving]
  - Blood sodium decreased [Recovering/Resolving]
  - Ventricular extrasystoles [Not Recovered/Not Resolved]
  - Lymphocyte count decreased [Recovering/Resolving]
  - Haematocrit decreased [Recovering/Resolving]
  - Gamma-glutamyltransferase increased [Recovering/Resolving]
  - Blood bicarbonate decreased [Recovering/Resolving]
  - Red cell distribution width increased [Recovering/Resolving]
  - Alanine aminotransferase increased [Recovering/Resolving]
  - Aspartate aminotransferase increased [Recovering/Resolving]
  - Blood phosphorus decreased [Recovering/Resolving]
  - Protein total decreased [Recovering/Resolving]
  - White blood cell count decreased [Recovering/Resolving]
  - Carbohydrate antigen 15-3 increased [Recovering/Resolving]
  - Prothrombin time prolonged [Recovering/Resolving]
  - Activated partial thromboplastin time shortened [Recovering/Resolving]
